FAERS Safety Report 14757816 (Version 1)
Quarter: 2018Q2

REPORT INFORMATION
  Report Type: Spontaneous
  Country: US (occurrence: US)
  Receive Date: 20180413
  Receipt Date: 20180413
  Transmission Date: 20180711
  Serious: Yes (Life-Threatening, Hospitalization, Other)
  Sender: FDA-Public Use
  Company Number: US-WEST-WARD PHARMACEUTICALS CORP.-US-H14001-18-02724

PATIENT
  Age: 33 Year
  Sex: Female
  Weight: 79 kg

DRUGS (25)
  1. TYLENOL [Concomitant]
     Active Substance: ACETAMINOPHEN
     Indication: PRODUCT USED FOR UNKNOWN INDICATION
     Route: 065
  2. FK506E(MR4) [Suspect]
     Active Substance: TACROLIMUS
     Route: 048
     Dates: end: 20180217
  3. COLACE [Concomitant]
     Active Substance: DOCUSATE SODIUM
     Indication: PRODUCT USED FOR UNKNOWN INDICATION
     Route: 065
  4. CYCLOSPORIN [Suspect]
     Active Substance: CYCLOSPORINE
     Indication: PRODUCT USED FOR UNKNOWN INDICATION
     Route: 065
  5. PREDNISONE. [Suspect]
     Active Substance: PREDNISONE
     Indication: PRODUCT USED FOR UNKNOWN INDICATION
     Route: 065
  6. MYFORTIC [Suspect]
     Active Substance: MYCOPHENOLATE SODIUM
     Route: 048
     Dates: start: 20180109, end: 20180111
  7. MPA [Suspect]
     Active Substance: MEDROXYPROGESTERONE ACETATE
     Indication: PRODUCT USED FOR UNKNOWN INDICATION
     Route: 065
  8. MAG-OX [Concomitant]
     Active Substance: MAGNESIUM OXIDE
     Indication: PRODUCT USED FOR UNKNOWN INDICATION
     Route: 065
  9. CLARITHROMYCIN. [Concomitant]
     Active Substance: CLARITHROMYCIN
     Indication: PRODUCT USED FOR UNKNOWN INDICATION
     Route: 065
  10. FK506E(MR4) [Suspect]
     Active Substance: TACROLIMUS
     Route: 048
     Dates: end: 20180217
  11. DESYREL [Concomitant]
     Active Substance: TRAZODONE HYDROCHLORIDE
     Indication: PRODUCT USED FOR UNKNOWN INDICATION
     Route: 065
  12. COREG [Concomitant]
     Active Substance: CARVEDILOL
     Indication: PRODUCT USED FOR UNKNOWN INDICATION
     Route: 065
  13. PREDNISONE. [Suspect]
     Active Substance: PREDNISONE
     Route: 048
     Dates: start: 20180108
  14. LIPITOR [Concomitant]
     Active Substance: ATORVASTATIN CALCIUM
     Indication: PRODUCT USED FOR UNKNOWN INDICATION
     Route: 065
  15. CRANBERRY. [Concomitant]
     Active Substance: CRANBERRY
     Route: 065
  16. HUMALOG [Concomitant]
     Active Substance: INSULIN LISPRO
     Indication: PRODUCT USED FOR UNKNOWN INDICATION
     Route: 065
  17. CLARITIN [Concomitant]
     Active Substance: LORATADINE
     Indication: PRODUCT USED FOR UNKNOWN INDICATION
     Route: 065
  18. MYFORTIC [Suspect]
     Active Substance: MYCOPHENOLATE SODIUM
     Indication: PROPHYLAXIS AGAINST TRANSPLANT REJECTION
     Route: 048
     Dates: start: 20170503, end: 20180108
  19. GLUCAGON DCI [Concomitant]
     Indication: PRODUCT USED FOR UNKNOWN INDICATION
     Route: 065
  20. FK506E(MR4) [Suspect]
     Active Substance: TACROLIMUS
     Indication: PROPHYLAXIS AGAINST TRANSPLANT REJECTION
     Route: 048
     Dates: start: 20170502
  21. ALEMTUZUMAB [Suspect]
     Active Substance: ALEMTUZUMAB
     Indication: IMMUNOSUPPRESSION
     Route: 042
     Dates: start: 20170502, end: 20170502
  22. BIOTIN [Concomitant]
     Active Substance: BIOTIN
     Indication: PRODUCT USED FOR UNKNOWN INDICATION
     Route: 065
  23. CRANBERRY. [Concomitant]
     Active Substance: CRANBERRY
     Indication: PRODUCT USED FOR UNKNOWN INDICATION
     Route: 065
  24. PROTONIX [Concomitant]
     Active Substance: PANTOPRAZOLE SODIUM
     Indication: PRODUCT USED FOR UNKNOWN INDICATION
     Route: 065
  25. FOSAMAX [Concomitant]
     Active Substance: ALENDRONATE SODIUM
     Indication: PRODUCT USED FOR UNKNOWN INDICATION
     Route: 065

REACTIONS (11)
  - Pneumonia [Recovering/Resolving]
  - Adenocarcinoma gastric [Recovering/Resolving]
  - Left ventricular dysfunction [Unknown]
  - Cytomegalovirus viraemia [Unknown]
  - Hypotension [Recovering/Resolving]
  - Tachycardia [Recovering/Resolving]
  - Pulmonary mass [Unknown]
  - Atelectasis [Unknown]
  - Malnutrition [Recovering/Resolving]
  - Pulmonary embolism [Unknown]
  - Acute kidney injury [Unknown]

NARRATIVE: CASE EVENT DATE: 201801
